FAERS Safety Report 6839932-3 (Version None)
Quarter: 2010Q3

REPORT INFORMATION
  Report Type: 
  Country: None (occurrence: None)
  Receive Date: 20100714
  Receipt Date: 20100708
  Transmission Date: 20110219
  Serious: Yes (Other)
  Sender: FDA-Public Use
  Company Number: DE-AMGEN-KDL422890

PATIENT
  Sex: Female
  Weight: 103 kg

DRUGS (6)
  1. NEUPOGEN [Suspect]
     Indication: CHEMOTHERAPY
     Route: 058
     Dates: start: 20100618, end: 20100620
  2. CIPROFLOXACIN [Suspect]
     Route: 048
     Dates: start: 20100618, end: 20100622
  3. FLUOROURACIL [Concomitant]
     Dates: start: 20100710
  4. EPIRUBICIN [Concomitant]
     Dates: start: 20100610
  5. CYCLOPHOSPHAMIDE [Concomitant]
     Dates: start: 20100610
  6. TAXOTERE [Concomitant]
     Dates: start: 20100610, end: 20100610

REACTIONS (2)
  - PRURITUS [None]
  - RASH [None]
